FAERS Safety Report 23160233 (Version 4)
Quarter: 2024Q2

REPORT INFORMATION
  Report Type: Other
  Country: PT (occurrence: PT)
  Receive Date: 20231108
  Receipt Date: 20240406
  Transmission Date: 20240716
  Serious: Yes (Death)
  Sender: FDA-Public Use
  Company Number: PT-ROCHE-3452556

PATIENT
  Age: 53 Year
  Sex: Female
  Weight: 58 kg

DRUGS (51)
  1. TREXALL [Suspect]
     Active Substance: METHOTREXATE SODIUM
     Indication: HER2 positive breast cancer
     Dosage: MOST RECENT DOSE: 03/JAN/2021
     Route: 042
     Dates: start: 20201013, end: 20210103
  2. NAVELBINE [Suspect]
     Active Substance: VINORELBINE TARTRATE
     Indication: HER2 positive breast cancer
     Dosage: MOST RECENT DOSE: 01/OCT/2020
     Route: 042
     Dates: start: 20200310, end: 20201001
  3. PERJETA [Suspect]
     Active Substance: PERTUZUMAB
     Indication: HER2 positive breast cancer
     Dosage: MOST RECENT DOSE: 18/FEB/2020
     Route: 042
     Dates: start: 20190903, end: 20200218
  4. PERJETA [Suspect]
     Active Substance: PERTUZUMAB
     Route: 042
     Dates: start: 20190903
  5. FLUOROPLEX [Suspect]
     Active Substance: FLUOROURACIL
     Indication: HER2 positive breast cancer
     Dosage: MOST RECENT DOSE: 03/JAN/2021
     Route: 042
     Dates: start: 20201013, end: 20210103
  6. CYTOXAN [Suspect]
     Active Substance: CYCLOPHOSPHAMIDE
     Indication: HER2 positive breast cancer
     Dosage: MOST RECENT DOSE: 03/JAN/2021
     Route: 042
     Dates: start: 20201013, end: 20210103
  7. FAM-TRASTUZUMAB DERUXTECAN-NXKI [Suspect]
     Active Substance: FAM-TRASTUZUMAB DERUXTECAN-NXKI
     Indication: HER2 positive breast cancer
     Route: 042
     Dates: start: 20210714, end: 20221124
  8. FAM-TRASTUZUMAB DERUXTECAN-NXKI [Suspect]
     Active Substance: FAM-TRASTUZUMAB DERUXTECAN-NXKI
     Dosage: 29/JUL/2019
     Route: 065
     Dates: start: 20190308
  9. FAM-TRASTUZUMAB DERUXTECAN-NXKI [Suspect]
     Active Substance: FAM-TRASTUZUMAB DERUXTECAN-NXKI
     Dosage: 18/MAR/2018
     Route: 065
     Dates: start: 20170614
  10. TYKERB [Suspect]
     Active Substance: LAPATINIB DITOSYLATE
     Indication: HER2 positive breast cancer
     Dosage: MOST RECENT DOSE: 23/JUL/2019
     Route: 048
     Dates: start: 20190207, end: 20190723
  11. XELODA [Suspect]
     Active Substance: CAPECITABINE
     Indication: Product used for unknown indication
     Route: 048
     Dates: start: 20180529, end: 20180820
  12. XELODA [Suspect]
     Active Substance: CAPECITABINE
     Route: 048
     Dates: start: 20180821, end: 20181114
  13. XELODA [Suspect]
     Active Substance: CAPECITABINE
     Route: 048
     Dates: start: 20181115, end: 20181206
  14. KADCYLA [Suspect]
     Active Substance: ADO-TRASTUZUMAB EMTANSINE
     Indication: HER2 positive breast cancer
     Dosage: MOST RECENT DOSE: 08/MAR/2018, 17/APR/2018
     Route: 042
     Dates: start: 20170614, end: 20180308
  15. KADCYLA [Suspect]
     Active Substance: ADO-TRASTUZUMAB EMTANSINE
     Route: 042
     Dates: start: 20180417, end: 20180508
  16. PARAPLATIN [Suspect]
     Active Substance: CARBOPLATIN
     Indication: HER2 positive breast cancer
     Dosage: MOST RECENT DOSE: 30/DEC/2022
     Route: 042
     Dates: start: 20221214, end: 20221230
  17. TAXOTERE [Suspect]
     Active Substance: DOCETAXEL
     Indication: HER2 positive breast cancer
     Dosage: MOST RECENT DOSE: 29/JUN/2021
     Route: 042
     Dates: start: 20210104, end: 20210629
  18. HERCEPTIN [Suspect]
     Active Substance: TRASTUZUMAB
     Indication: HER2 positive breast cancer
     Dosage: MOST RECENT DOSE PRIOR TO THE EVENT: 13/OCT/2020, 14/DEC/2022
     Route: 058
     Dates: start: 20180529, end: 20190729
  19. HERCEPTIN [Suspect]
     Active Substance: TRASTUZUMAB
     Route: 058
     Dates: start: 20180529, end: 20190117
  20. HERCEPTIN [Suspect]
     Active Substance: TRASTUZUMAB
     Route: 058
     Dates: start: 20180529
  21. GEMZAR [Suspect]
     Active Substance: GEMCITABINE HYDROCHLORIDE
     Indication: HER2 positive breast cancer
     Dosage: MOST RECENT DOSE: 30/DEC/2022
     Route: 065
     Dates: start: 20221214, end: 20221230
  22. ADRUCIL [Suspect]
     Active Substance: FLUOROURACIL
     Indication: HER2 positive breast cancer
     Dosage: MOST RECENT DOSE: 03/JAN/2021
     Route: 042
     Dates: start: 20201013
  23. FILGRASTIM [Suspect]
     Active Substance: FILGRASTIM
     Indication: Product used for unknown indication
     Route: 065
     Dates: end: 20221230
  24. TAXOL [Suspect]
     Active Substance: PACLITAXEL
     Indication: HER2 positive breast cancer
     Dosage: MOST RECENT DOSE: 11/FEB/2020
     Route: 042
     Dates: start: 20190813, end: 20200211
  25. EFUDEX [Suspect]
     Active Substance: FLUOROURACIL
     Indication: HER2 positive breast cancer
     Dosage: MOST RECENT DOSE: 03/JAN/2021
     Route: 042
     Dates: start: 20201013, end: 20210103
  26. HERCEPTIN [Suspect]
     Active Substance: TRASTUZUMAB
     Indication: HER2 positive breast cancer
     Route: 042
     Dates: start: 20221214, end: 20221230
  27. CALCIUM CARBONATE [Concomitant]
     Active Substance: CALCIUM CARBONATE
     Dosage: ONGOING = NOT CHECKED
     Dates: end: 20221230
  28. METOCLOPRAMIDE [Concomitant]
     Active Substance: METOCLOPRAMIDE
     Dosage: ONGOING = NOT CHECKED
     Dates: end: 20221230
  29. IVABRADINE [Concomitant]
     Active Substance: IVABRADINE
     Indication: Ejection fraction decreased
     Dates: start: 20180308, end: 20221230
  30. FERRIC CARBOXYMALTOSE [Concomitant]
     Active Substance: FERRIC CARBOXYMALTOSE
  31. ZOLEDRONIC ACID [Concomitant]
     Active Substance: ZOLEDRONIC ACID
     Dosage: ONGOING = NOT CHECKED
     Dates: start: 20170509, end: 20221230
  32. DECALCIT [Concomitant]
     Dosage: ONGOING = NOT CHECKED
     Dates: start: 20170509, end: 20221230
  33. PREGABALIN [Concomitant]
     Active Substance: PREGABALIN
     Dosage: ONGOING = NOT CHECKED
     Dates: end: 20221230
  34. IPRATROPIUM BROMIDE [Concomitant]
     Active Substance: IPRATROPIUM BROMIDE\IPRATROPIUM BROMIDE ANHYDROUS
     Dosage: ONGOING = NOT CHECKED, 1.00 AMPULE
     Dates: end: 20221230
  35. BACIDERMA [Concomitant]
     Dosage: ONGOING = NOT CHECKED
     Dates: end: 20221230
  36. RAMIPRIL [Concomitant]
     Active Substance: RAMIPRIL
     Indication: Ejection fraction decreased
     Dosage: ONGOING = NOT CHECKED
     Dates: start: 20180308, end: 20221230
  37. AZITHROMYCIN [Concomitant]
     Active Substance: AZITHROMYCIN
  38. CHOLECALCIFEROL [Concomitant]
     Active Substance: CHOLECALCIFEROL
     Dosage: ONGOING = NOT CHECKED
     Dates: end: 20221230
  39. ACETAMINOPHEN [Concomitant]
     Active Substance: ACETAMINOPHEN
     Dosage: ONGOING = NOT CHECKED
     Dates: end: 20221230
  40. LEVOCETIRIZINE [Concomitant]
     Active Substance: LEVOCETIRIZINE
  41. OXYCODONE [Concomitant]
     Active Substance: OXYCODONE\OXYCODONE HYDROCHLORIDE
     Dosage: ONGOING = NOT CHECKED
     Dates: end: 20221230
  42. PREDNISONE [Concomitant]
     Active Substance: PREDNISONE
  43. CETIRIZINE [Concomitant]
     Active Substance: CETIRIZINE HYDROCHLORIDE
     Dosage: ONGOING = NOT CHECKED
     Dates: end: 20221230
  44. BUDESONIDE [Concomitant]
     Active Substance: BUDESONIDE
     Dosage: ONGOING = NOT CHECKED
     Dates: end: 20221230
  45. LOPERAMIDE [Concomitant]
     Active Substance: LOPERAMIDE
     Dosage: ONGOING = NOT CHECKED
     Dates: end: 20221230
  46. PYRIDOXINE [Concomitant]
     Active Substance: PYRIDOXINE
     Dosage: ONGOING = NOT CHECKED
     Dates: end: 20221230
  47. ACETYLCYSTEINE [Concomitant]
     Active Substance: ACETYLCYSTEINE
     Dosage: ONGOING = NOT CHECKED
     Dates: end: 20221230
  48. NALOXONE [Concomitant]
     Active Substance: NALOXONE
     Dosage: ONGOING = NOT CHECKED
     Dates: end: 20221230
  49. NALOXONE HYDROCHLORIDE\OXYCODONE HYDROCHLORIDE [Concomitant]
     Active Substance: NALOXONE HYDROCHLORIDE\OXYCODONE HYDROCHLORIDE
     Dosage: ONGOING = NOT CHECKED
     Dates: start: 20170529, end: 20221230
  50. BISOPROLOL [Concomitant]
     Active Substance: BISOPROLOL\BISOPROLOL FUMARATE
     Dosage: ONGOING = NOT CHECKED
     Dates: start: 20171129, end: 20221230
  51. FILGRASTIM [Concomitant]
     Active Substance: FILGRASTIM
     Dosage: ONGOING = NOT CHECKED
     Dates: end: 20221230

REACTIONS (2)
  - Pancytopenia [Fatal]
  - Pneumonia [Fatal]

NARRATIVE: CASE EVENT DATE: 20221227
